FAERS Safety Report 10207031 (Version 1)
Quarter: 2014Q2

REPORT INFORMATION
  Report Type: Spontaneous
  Country: FR (occurrence: FR)
  Receive Date: 20140530
  Receipt Date: 20140530
  Transmission Date: 20141212
  Serious: Yes (Hospitalization, Other)
  Sender: FDA-Public Use
  Company Number: FR-ACTAVIS-2014-11596

PATIENT
  Age: 17 Year
  Sex: Male

DRUGS (1)
  1. PREDNISONE (UNKNOWN) [Suspect]
     Indication: JUVENILE IDIOPATHIC ARTHRITIS
     Dosage: 1 MG/KG, DAILY
     Route: 065

REACTIONS (2)
  - Hepatitis infectious mononucleosis [Unknown]
  - Epstein-Barr virus infection [Recovering/Resolving]
